FAERS Safety Report 11296003 (Version 1)
Quarter: 2015Q3

REPORT INFORMATION
  Report Type: Spontaneous
  Country: US (occurrence: US)
  Receive Date: 20150722
  Receipt Date: 20150722
  Transmission Date: 20151125
  Serious: Yes (Other)
  Sender: FDA-Public Use
  Company Number: US-ELI_LILLY_AND_COMPANY-US201001001733

PATIENT
  Age: 81 Year
  Sex: Female

DRUGS (2)
  1. EVISTA [Suspect]
     Active Substance: RALOXIFENE HYDROCHLORIDE
     Dosage: UNK, UNKNOWN
     Route: 065
  2. MEGACE [Interacting]
     Active Substance: MEGESTROL ACETATE
     Dosage: UNK, UNKNOWN
     Route: 065

REACTIONS (2)
  - Vaginal haemorrhage [Unknown]
  - Drug interaction [Unknown]
